FAERS Safety Report 17539754 (Version 1)
Quarter: 2020Q1

REPORT INFORMATION
  Report Type: Spontaneous
  Country: IT (occurrence: IT)
  Receive Date: 20200313
  Receipt Date: 20200313
  Transmission Date: 20200409
  Serious: Yes (Congenital Anomaly, Other)
  Sender: FDA-Public Use
  Company Number: IT-TEVA-2020-IT-1203602

PATIENT
  Age: 33 Year
  Sex: Male

DRUGS (2)
  1. LANSOPRAZOLE. [Suspect]
     Active Substance: LANSOPRAZOLE
     Indication: HIATUS HERNIA
     Dosage: 30 MILLIGRAM DAILY;
     Route: 065
  2. SODIUM-ALGINATE [Concomitant]
     Indication: HIATUS HERNIA
     Route: 065

REACTIONS (2)
  - Weight decreased [Unknown]
  - Gitelman^s syndrome [Recovering/Resolving]
